FAERS Safety Report 5324115-9 (Version None)
Quarter: 2007Q2

REPORT INFORMATION
  Report Type: 
  Country: None (occurrence: None)
  Receive Date: 20070514
  Receipt Date: 20060615
  Transmission Date: 20071010
  Serious: No
  Sender: FDA-Public Use
  Company Number: A0609162A

PATIENT
  Sex: Female

DRUGS (4)
  1. NABUMETONE [Suspect]
     Indication: FIBROMYALGIA
     Dosage: 500MG TWICE PER DAY
     Route: 065
     Dates: start: 20050101
  2. AMITRIPTYLINE HCL [Concomitant]
  3. KLONOPIN [Concomitant]
  4. TOPROL-XL [Concomitant]

REACTIONS (2)
  - DRUG INEFFECTIVE [None]
  - FIBROMYALGIA [None]
